FAERS Safety Report 9559889 (Version 1)
Quarter: 2013Q3

REPORT INFORMATION
  Report Type: Spontaneous
  Country: US (occurrence: None)
  Receive Date: 20130906
  Receipt Date: 20130906
  Transmission Date: 20140515
  Serious: Yes (Hospitalization)
  Sender: FDA-Public Use
  Company Number: 163-POMAL-13074350

PATIENT
  Age: 75 Year
  Sex: Male

DRUGS (2)
  1. POMALYST (POMALIDOMIDE) (CAPSULES) [Suspect]
     Indication: PLASMA CELL MYELOMA
     Route: 048
     Dates: start: 20130701, end: 20130724
  2. DEXAMETHASONE [Concomitant]

REACTIONS (2)
  - Sepsis [None]
  - Pneumonia [None]
